FAERS Safety Report 9625530 (Version 1)
Quarter: 2013Q4

REPORT INFORMATION
  Report Type: Report from Study
  Country: CA (occurrence: CA)
  Receive Date: 20131016
  Receipt Date: 20131016
  Transmission Date: 20140711
  Serious: Yes (Hospitalization)
  Sender: FDA-Public Use
  Company Number: PHHY2013CA115669

PATIENT
  Age: 67 Year
  Sex: Male

DRUGS (5)
  1. CLOZARIL [Suspect]
     Indication: SCHIZOAFFECTIVE DISORDER BIPOLAR TYPE
     Dosage: UNK UKN, UNK
     Route: 048
     Dates: start: 20101217
  2. CLOZARIL [Suspect]
     Dosage: DOSE REDUCED
     Route: 048
  3. SEROQUEL [Concomitant]
     Dosage: 300 MG, UNK
  4. SEROQUEL [Concomitant]
     Dosage: 150 MG, UNK
  5. LAMOTRIGIN [Concomitant]
     Dosage: 100 MG, UNK

REACTIONS (3)
  - Urinary tract infection [Recovered/Resolved]
  - Ataxia [Recovered/Resolved]
  - Somnolence [Recovered/Resolved]
